FAERS Safety Report 7549065 (Version 4)
Quarter: 2013Q3

REPORT INFORMATION
  Report Type: Report from Study
  Country: CA (occurrence: CA)
  Receive Date: 20100820
  Receipt Date: 20130829
  Transmission Date: 20140515
  Serious: Yes (Life-Threatening)
  Sender: FDA-Public Use
  Company Number: CA-ABBOTT-10P-028-0664490-00

PATIENT
  Age: 44 Year
  Sex: Male
  Weight: 82 kg

DRUGS (1)
  1. HUMIRA [Suspect]
     Indication: PSORIASIS
     Route: 058
     Dates: start: 20090814

REACTIONS (2)
  - Syncope [Recovered/Resolved]
  - Vision blurred [Recovered/Resolved]
